FAERS Safety Report 9842392 (Version 2)
Quarter: 2014Q1

REPORT INFORMATION
  Report Type: Report from Study
  Country: CO (occurrence: CO)
  Receive Date: 20140124
  Receipt Date: 20140124
  Transmission Date: 20141002
  Serious: Yes (Death, Hospitalization, Other)
  Sender: FDA-Public Use
  Company Number: CO-BRISTOL-MYERS SQUIBB COMPANY-19059302

PATIENT
  Age: 51 Year
  Sex: Female
  Weight: 44 kg

DRUGS (1)
  1. YERVOY [Suspect]
     Indication: METASTATIC MALIGNANT MELANOMA
     Dosage: ADMINISTRATION: 4 VIALS. CYCLES:3?DATES: CYCLE 1:02MAR13,2ND CYCLE:23MAR13,3RD CYCLE:14JUN13.
     Route: 042
     Dates: start: 20130302

REACTIONS (4)
  - Death [Fatal]
  - Haemoglobin decreased [Unknown]
  - Paraesthesia [Unknown]
  - Pruritus [Unknown]
